FAERS Safety Report 5842523-4 (Version None)
Quarter: 2008Q3

REPORT INFORMATION
  Report Type: 
  Country: None (occurrence: None)
  Receive Date: 20080812
  Receipt Date: 20080801
  Transmission Date: 20090109
  Serious: Yes (Hospitalization, Disabling, Other)
  Sender: FDA-Public Use
  Company Number: FR-PFIZER INC-2007103430

PATIENT
  Sex: Female
  Weight: 57 kg

DRUGS (4)
  1. TAHOR [Suspect]
     Indication: MYOCARDIAL INFARCTION
     Dates: start: 20060501, end: 20071201
  2. PLAVIX [Concomitant]
     Indication: MYOCARDIAL INFARCTION
  3. TENORMIN [Concomitant]
     Indication: MYOCARDIAL INFARCTION
  4. ESCITALOPRAM OXALATE [Concomitant]
     Indication: DEPRESSION
     Dosage: TEXT:HALF TABLET PER DAY
     Dates: start: 20070801, end: 20071101

REACTIONS (3)
  - DEPRESSION [None]
  - PANCREATITIS CHRONIC [None]
  - WEIGHT DECREASED [None]
